FAERS Safety Report 13932620 (Version 1)
Quarter: 2017Q3

REPORT INFORMATION
  Report Type: Spontaneous
  Country: US (occurrence: US)
  Receive Date: 20170904
  Receipt Date: 20170904
  Transmission Date: 20171127
  Serious: Yes (Other)
  Sender: FDA-Public Use
  Company Number: US-CHIESI USA INC-US-CHSI-17-00044

PATIENT
  Sex: Male

DRUGS (3)
  1. KENGREAL [Suspect]
     Active Substance: CANGRELOR
     Route: 041
  2. CRYSTALLOID [Concomitant]
     Active Substance: UNSPECIFIED INGREDIENT
     Indication: PRODUCT USED FOR UNKNOWN INDICATION
     Route: 042
  3. KENGREAL [Suspect]
     Active Substance: CANGRELOR
     Indication: PRODUCT USED FOR UNKNOWN INDICATION
     Route: 040

REACTIONS (1)
  - Pulmonary oedema [Unknown]
